FAERS Safety Report 21614307 (Version 1)
Quarter: 2022Q4

REPORT INFORMATION
  Report Type: Other
  Country: CA (occurrence: CA)
  Receive Date: 20221118
  Receipt Date: 20221118
  Transmission Date: 20230113
  Serious: Yes (Other)
  Sender: FDA-Public Use
  Company Number: CA-APOTEX-2022AP015402

PATIENT
  Age: 23 Year
  Sex: Female

DRUGS (20)
  1. METRONIDAZOLE [Suspect]
     Active Substance: METRONIDAZOLE
     Indication: Pericoronitis
     Dosage: UNK
     Route: 065
  2. METRONIDAZOLE [Suspect]
     Active Substance: METRONIDAZOLE
     Indication: Tooth infection
  3. METRONIDAZOLE [Suspect]
     Active Substance: METRONIDAZOLE
     Indication: Febrile neutropenia
  4. CEFUROXIME [Suspect]
     Active Substance: CEFUROXIME
     Indication: Pericoronitis
     Dosage: UNK
     Route: 065
  5. CEFUROXIME [Suspect]
     Active Substance: CEFUROXIME
     Indication: Tooth infection
  6. CEFUROXIME [Suspect]
     Active Substance: CEFUROXIME
     Indication: Febrile neutropenia
  7. AMPHOTERICIN B [Suspect]
     Active Substance: AMPHOTERICIN B
     Indication: Prophylaxis
     Dosage: UNK
     Route: 065
  8. AMPHOTERICIN B [Suspect]
     Active Substance: AMPHOTERICIN B
     Indication: Antifungal prophylaxis
  9. BETAMETHASONE [Suspect]
     Active Substance: BETAMETHASONE
     Indication: Maternal therapy to enhance foetal lung maturity
     Dosage: UNK
     Route: 030
  10. CYTARABINE [Suspect]
     Active Substance: CYTARABINE
     Indication: Drug therapy
     Dosage: 1000 MILLIGRAM/SQ. METER, QD
     Route: 042
  11. CYTARABINE [Suspect]
     Active Substance: CYTARABINE
     Indication: Acute myeloid leukaemia
     Dosage: 100 MILLIGRAM/SQ. METER
     Route: 065
  12. CYTARABINE [Suspect]
     Active Substance: CYTARABINE
     Dosage: UNK
     Route: 065
  13. MEROPENEM [Suspect]
     Active Substance: MEROPENEM
     Indication: Pericoronitis
     Dosage: UNK
     Route: 065
  14. MEROPENEM [Suspect]
     Active Substance: MEROPENEM
     Indication: Tooth infection
  15. MEROPENEM [Suspect]
     Active Substance: MEROPENEM
     Indication: Febrile neutropenia
  16. DAUNORUBICIN [Suspect]
     Active Substance: DAUNORUBICIN
     Indication: Acute myeloid leukaemia
     Dosage: 60 MILLIGRAM/SQ. METER
     Route: 065
  17. DINOPROSTONE [Suspect]
     Active Substance: DINOPROSTONE
     Indication: Induction of cervix ripening
     Dosage: UNK
     Route: 067
  18. IRON [Suspect]
     Active Substance: IRON
     Indication: Supplementation therapy
     Dosage: UNK
     Route: 065
  19. MAGNESIUM [Suspect]
     Active Substance: MAGNESIUM
     Indication: Nervous system disorder prophylaxis
     Dosage: UNK
     Route: 042
  20. OXYTOCIN [Suspect]
     Active Substance: OXYTOCIN
     Indication: Labour induction
     Dosage: UNK
     Route: 065

REACTIONS (5)
  - Premature delivery [Unknown]
  - Exposure during pregnancy [Unknown]
  - Delivery [Unknown]
  - Product use in unapproved indication [Unknown]
  - Maternal exposure during pregnancy [Unknown]
